FAERS Safety Report 8285855-5 (Version None)
Quarter: 2012Q2

REPORT INFORMATION
  Report Type: 
  Country: None (occurrence: None)
  Receive Date: 20120413
  Receipt Date: 20120403
  Transmission Date: 20120825
  Serious: Yes (Hospitalization)
  Sender: FDA-Public Use
  Company Number: FR-ELI_LILLY_AND_COMPANY-FR201112003715

PATIENT
  Age: 75 Year
  Sex: Female
  Weight: 87 kg

DRUGS (3)
  1. FORTEO [Suspect]
     Indication: OSTEOPOROSIS
     Dosage: 20 UG, QD
     Route: 058
     Dates: start: 20110501
  2. VITAMIN D [Concomitant]
     Indication: OSTEOPOROSIS
     Dosage: UNK
     Dates: start: 20070501
  3. CACIT                                   /FRA/ [Concomitant]
     Indication: OSTEOPOROSIS
     Dosage: 500 MG, QD
     Dates: start: 20100601

REACTIONS (2)
  - BONE GRAFT [None]
  - JOINT ARTHROPLASTY [None]
